FAERS Safety Report 12849711 (Version 3)
Quarter: 2017Q4

REPORT INFORMATION
  Report Type: Spontaneous
  Country: US (occurrence: US)
  Receive Date: 20161014
  Receipt Date: 20171027
  Transmission Date: 20180320
  Serious: No
  Sender: FDA-Public Use
  Company Number: US-ROCHE-1808158

PATIENT
  Sex: Male

DRUGS (8)
  1. DISOPYRAMIDE PHOSPHATE. [Concomitant]
     Active Substance: DISOPYRAMIDE PHOSPHATE
  2. ALLOPURINOL. [Concomitant]
     Active Substance: ALLOPURINOL
  3. GLIPIZIDE. [Concomitant]
     Active Substance: GLIPIZIDE
  4. DILTIAZEM HCL [Concomitant]
     Active Substance: DILTIAZEM HYDROCHLORIDE
  5. OMEPRAZOLE. [Concomitant]
     Active Substance: OMEPRAZOLE
  6. FUROSEMIDE. [Concomitant]
     Active Substance: FUROSEMIDE
  7. WARFARIN SODIUM. [Concomitant]
     Active Substance: WARFARIN SODIUM
  8. ESBRIET [Suspect]
     Active Substance: PIRFENIDONE
     Indication: OVERWEIGHT
     Route: 048
     Dates: start: 20160713

REACTIONS (5)
  - Asthenia [Unknown]
  - Decreased appetite [Unknown]
  - Fatigue [Not Recovered/Not Resolved]
  - Weight decreased [Unknown]
  - Diarrhoea [Not Recovered/Not Resolved]
